FAERS Safety Report 20852747 (Version 1)
Quarter: 2022Q2

REPORT INFORMATION
  Report Type: Spontaneous
  Country: US (occurrence: None)
  Receive Date: 20220519
  Receipt Date: 20220519
  Transmission Date: 20220721
  Serious: Yes (Hospitalization)
  Sender: FDA-Public Use
  Company Number: None

PATIENT
  Sex: Male
  Weight: 62.1 kg

DRUGS (19)
  1. CISPLATIN [Suspect]
     Active Substance: CISPLATIN
     Dates: end: 20211101
  2. VITAMIN E [Concomitant]
     Active Substance: .ALPHA.-TOCOPHEROL
  3. WELLBUTRIN [Concomitant]
     Active Substance: BUPROPION HYDROCHLORIDE
  4. ACETAMINOPHEN [Concomitant]
     Active Substance: ACETAMINOPHEN
  5. ALBUTEROL [Concomitant]
     Active Substance: ALBUTEROL
  6. AMOXICILLIN-POTASSIUM [Concomitant]
  7. ASCORBIC ACID [Concomitant]
     Active Substance: ASCORBIC ACID
  8. CEFEPIME [Concomitant]
  9. VITAMINS [Concomitant]
     Active Substance: VITAMINS
  10. CHLORHEXIDINE [Concomitant]
     Active Substance: CHLORHEXIDINE
  11. CYCLOBENAPRINE [Concomitant]
  12. DEXMEDE TOMIDINE [Concomitant]
  13. DEXTROSE [Concomitant]
     Active Substance: DEXTROSE
  14. GABAPENTIN [Concomitant]
     Active Substance: GABAPENTIN
  15. GLUCAGON [Concomitant]
     Active Substance: GLUCAGON
  16. HEPARIN PRESERVATIVE FREE [Concomitant]
  17. INSULIN ASPART [Concomitant]
     Active Substance: INSULIN ASPART
  18. MELATONIN [Concomitant]
     Active Substance: MELATONIN
  19. THIAMINE [Concomitant]
     Active Substance: THIAMINE

REACTIONS (13)
  - Dyspnoea [None]
  - Respiratory tract congestion [None]
  - Pyrexia [None]
  - Diarrhoea [None]
  - Fall [None]
  - Oxygen saturation decreased [None]
  - Hypotension [None]
  - Dehydration [None]
  - Sepsis [None]
  - Pneumonia [None]
  - Lactic acidosis [None]
  - Acute kidney injury [None]
  - Sputum culture positive [None]

NARRATIVE: CASE EVENT DATE: 20220417
